FAERS Safety Report 15302864 (Version 6)
Quarter: 2019Q1

REPORT INFORMATION
  Report Type: Report from Study
  Country: US (occurrence: US)
  Receive Date: 20180821
  Receipt Date: 20190311
  Transmission Date: 20190417
  Serious: Yes (Life-Threatening, Hospitalization, Other)
  Sender: FDA-Public Use
  Company Number: US-ACTELION-A-US2016-132082

PATIENT
  Age: 62 Year
  Sex: Female

DRUGS (16)
  1. POTASSIUM [Concomitant]
     Active Substance: POTASSIUM
     Dosage: 20 MEQ, BID
     Dates: start: 20160125
  2. PROPRANOLOL [Concomitant]
     Active Substance: PROPRANOLOL HYDROCHLORIDE
  3. RABEPRAZOLE [Concomitant]
     Active Substance: RABEPRAZOLE
  4. FLONASE [Concomitant]
     Active Substance: FLUTICASONE PROPIONATE
  5. IRON [Concomitant]
     Active Substance: IRON
  6. SYNTHROID [Concomitant]
     Active Substance: LEVOTHYROXINE SODIUM
  7. TRAZODONE [Concomitant]
     Active Substance: TRAZODONE HYDROCHLORIDE
  8. OPSUMIT [Suspect]
     Active Substance: MACITENTAN
     Indication: PULMONARY ARTERIAL HYPERTENSION
     Dosage: UNK
     Route: 048
     Dates: start: 20151016
  9. POTASSIUM [Concomitant]
     Active Substance: POTASSIUM
     Dosage: 20 MEQ, QD
     Route: 048
     Dates: end: 20160125
  10. TRAMADOL. [Concomitant]
     Active Substance: TRAMADOL
     Dosage: 100 MG
     Route: 048
     Dates: end: 20190107
  11. INJECTAFER [Concomitant]
     Active Substance: FERRIC CARBOXYMALTOSE
     Dosage: UNK
     Dates: start: 20161108
  12. LIALDA [Concomitant]
     Active Substance: MESALAMINE
     Dosage: UNK
  13. LIALDA [Concomitant]
     Active Substance: MESALAMINE
     Dosage: 1.2 G
  14. ULTRAM [Concomitant]
     Active Substance: TRAMADOL HYDROCHLORIDE
  15. ALENDRONATE [Concomitant]
     Active Substance: ALENDRONATE SODIUM
     Dosage: 70 MG, 1 PER WEEK
     Dates: start: 20190107
  16. FUROSEMIDE. [Concomitant]
     Active Substance: FUROSEMIDE
     Dosage: 80 MG, QD
     Dates: start: 20190107

REACTIONS (31)
  - Dyspnoea [Recovered/Resolved]
  - Hepatomegaly [Not Recovered/Not Resolved]
  - Transplant evaluation [Unknown]
  - Electrolyte imbalance [Not Recovered/Not Resolved]
  - Fall [Unknown]
  - Haemoglobin decreased [Unknown]
  - Asthenia [Recovered/Resolved]
  - Hepatic cancer [Unknown]
  - Haematocrit decreased [Unknown]
  - Abdominal pain [Recovered/Resolved]
  - Abdominal discomfort [Recovered/Resolved]
  - Hypokalaemia [Recovered/Resolved]
  - Hypomagnesaemia [Recovered/Resolved]
  - Thrombocytopenia [Not Recovered/Not Resolved]
  - Platelet count decreased [Not Recovered/Not Resolved]
  - Cardiac murmur [Not Recovered/Not Resolved]
  - Anxiety [Unknown]
  - Hypoxia [Unknown]
  - Brain natriuretic peptide [Not Recovered/Not Resolved]
  - Hepatic mass [Unknown]
  - Right ventricular failure [Unknown]
  - Gastrooesophageal reflux disease [Unknown]
  - Peripheral venous disease [Not Recovered/Not Resolved]
  - Abdominal pain lower [Recovered/Resolved]
  - Blood bilirubin increased [Not Recovered/Not Resolved]
  - Fatigue [Not Recovered/Not Resolved]
  - Cholelithiasis [Recovered/Resolved]
  - Iron deficiency anaemia [Recovered/Resolved]
  - Tricuspid valve disease [Not Recovered/Not Resolved]
  - Oedema peripheral [Not Recovered/Not Resolved]
  - White blood cell count decreased [Unknown]

NARRATIVE: CASE EVENT DATE: 20151105
